FAERS Safety Report 24589671 (Version 1)
Quarter: 2024Q4

REPORT INFORMATION
  Report Type: Spontaneous
  Country: GB (occurrence: GB)
  Receive Date: 20241107
  Receipt Date: 20241107
  Transmission Date: 20250115
  Serious: Yes (Death)
  Sender: VIFOR (INTERNATIONAL) INC.
  Company Number: None

PATIENT
  Age: 80 Year
  Sex: Male

DRUGS (1)
  1. MIRCERA [Suspect]
     Active Substance: METHOXY POLYETHYLENE GLYCOL-EPOETIN BETA
     Indication: Peritoneal dialysis
     Dosage: MIRCERA 30MICROGRAMS/0.3ML FOR INJECTION EACH
     Route: 065

REACTIONS (1)
  - Death [Fatal]
